FAERS Safety Report 12291119 (Version 1)
Quarter: 2016Q2

REPORT INFORMATION
  Report Type: Report from Study
  Country: DE (occurrence: DE)
  Receive Date: 20160421
  Receipt Date: 20160421
  Transmission Date: 20160815
  Serious: Yes (Hospitalization)
  Sender: FDA-Public Use
  Company Number: DE-BIOGEN-2015BI135600

PATIENT
  Age: 36 Year
  Sex: Female

DRUGS (3)
  1. PLEGRIDY [Suspect]
     Active Substance: PEGINTERFERON BETA-1A
     Indication: MULTIPLE SCLEROSIS
     Route: 058
     Dates: start: 20150418
  2. PLEGRIDY [Suspect]
     Active Substance: PEGINTERFERON BETA-1A
     Route: 058
  3. PLEGRIDY [Suspect]
     Active Substance: PEGINTERFERON BETA-1A
     Route: 058

REACTIONS (6)
  - Intussusception [Recovered/Resolved with Sequelae]
  - Medical device site inflammation [Unknown]
  - Procedural pain [Not Recovered/Not Resolved]
  - Weight increased [Unknown]
  - Postoperative fever [Unknown]
  - Device allergy [Unknown]

NARRATIVE: CASE EVENT DATE: 2015
